FAERS Safety Report 5950374-5 (Version None)
Quarter: 2008Q4

REPORT INFORMATION
  Report Type: 
  Country: None (occurrence: None)
  Receive Date: 20081112
  Receipt Date: 20081105
  Transmission Date: 20090506
  Serious: Yes (Other)
  Sender: FDA-Public Use
  Company Number: PHEH2008US09964

PATIENT

DRUGS (1)
  1. LOTREL [Suspect]

REACTIONS (2)
  - GASTRIC BANDING [None]
  - OBESITY [None]
